FAERS Safety Report 11385687 (Version 14)
Quarter: 2017Q1

REPORT INFORMATION
  Report Type: Report from Study
  Country: CA (occurrence: CA)
  Receive Date: 20150817
  Receipt Date: 20170314
  Transmission Date: 20170428
  Serious: Yes (Other)
  Sender: FDA-Public Use
  Company Number: CA-ROCHE-1541498

PATIENT
  Age: 56 Year
  Sex: Female

DRUGS (4)
  1. TYLENOL WITH CODEINE [Concomitant]
     Active Substance: ACETAMINOPHEN\CODEINE PHOSPHATE
  2. ACTEMRA [Suspect]
     Active Substance: TOCILIZUMAB
     Indication: RHEUMATOID ARTHRITIS
     Route: 058
     Dates: start: 20150211
  3. PARIET [Concomitant]
     Active Substance: RABEPRAZOLE SODIUM
  4. REACTINE (CANADA) [Concomitant]
     Active Substance: CETIRIZINE HYDROCHLORIDE
     Route: 065

REACTIONS (19)
  - Upper limb fracture [Unknown]
  - Headache [Not Recovered/Not Resolved]
  - Back pain [Not Recovered/Not Resolved]
  - Cholelithiasis [Unknown]
  - Anxiety [Unknown]
  - Toothache [Not Recovered/Not Resolved]
  - Hypotension [Unknown]
  - Dry mouth [Not Recovered/Not Resolved]
  - Blood blister [Recovering/Resolving]
  - Gingival bleeding [Unknown]
  - Body temperature decreased [Unknown]
  - Nail bed bleeding [Recovered/Resolved]
  - Localised infection [Not Recovered/Not Resolved]
  - Blood pressure diastolic decreased [Unknown]
  - Oral pain [Not Recovered/Not Resolved]
  - Fall [Unknown]
  - Tooth abscess [Not Recovered/Not Resolved]
  - Hyperkeratosis [Not Recovered/Not Resolved]
  - Gastroenteritis viral [Not Recovered/Not Resolved]

NARRATIVE: CASE EVENT DATE: 20150211
